FAERS Safety Report 5341970-7 (Version None)
Quarter: 2007Q2

REPORT INFORMATION
  Report Type: 
  Country: None (occurrence: None)
  Receive Date: 20070530
  Receipt Date: 20070530
  Transmission Date: 20071010
  Serious: Yes (Life-Threatening, Hospitalization)
  Sender: FDA-Public Use
  Company Number: None

PATIENT
  Age: 68 Year
  Sex: Female
  Weight: 120 kg

DRUGS (1)
  1. REVATIO [Suspect]
     Dosage: 50 MG EVERY 6 HOURS ORALLY
     Route: 048
     Dates: start: 20070213, end: 20070215

REACTIONS (3)
  - CARDIO-RESPIRATORY ARREST [None]
  - VENTRICULAR FIBRILLATION [None]
  - VENTRICULAR TACHYCARDIA [None]
